FAERS Safety Report 17638248 (Version 1)
Quarter: 2020Q2

REPORT INFORMATION
  Report Type: Spontaneous
  Country: US (occurrence: US)
  Receive Date: 20200407
  Receipt Date: 20200407
  Transmission Date: 20200713
  Serious: No
  Sender: FDA-Public Use
  Company Number: US-UNITED THERAPEUTICS-UNT-2020-005167

PATIENT
  Sex: Female
  Weight: 71 kg

DRUGS (3)
  1. REMODULIN [Suspect]
     Active Substance: TREPROSTINIL
     Indication: PULMONARY ARTERIAL HYPERTENSION
     Dosage: UNK, CONTINUING
     Route: 058
     Dates: start: 201709
  2. REMODULIN [Suspect]
     Active Substance: TREPROSTINIL
     Dosage: 0.0519 ?G/KG AT THE RATE 0.028ML/HR, CONTINUING
     Route: 058
  3. REMODULIN [Suspect]
     Active Substance: TREPROSTINIL
     Dosage: 0.0646 ?G/KG AT THE RATE 0.028ML/HR, CONTINUING
     Route: 058

REACTIONS (5)
  - Diarrhoea [Unknown]
  - Weight decreased [Unknown]
  - Blood potassium abnormal [Unknown]
  - Nausea [Unknown]
  - Vomiting [Unknown]
